FAERS Safety Report 18522884 (Version 1)
Quarter: 2020Q4

REPORT INFORMATION
  Report Type: Not Available
  Country: US (occurrence: US)
  Receive Date: 20201119
  Receipt Date: 20201119
  Transmission Date: 20210114
  Serious: No
  Sender: FDA-Public Use
  Company Number: US-NEUROCRINE BIOSCIENCES INC.-2020NBI04121

PATIENT
  Age: 55 Year
  Sex: Female

DRUGS (5)
  1. PILOCARPINE. [Concomitant]
     Active Substance: PILOCARPINE
  2. MIRTAZAPINE. [Concomitant]
     Active Substance: MIRTAZAPINE
     Dates: end: 20201104
  3. INGREZZA [Suspect]
     Active Substance: VALBENAZINE
     Indication: TARDIVE DYSKINESIA
     Route: 048
     Dates: start: 202009, end: 202009
  4. DIAZEPAM. [Concomitant]
     Active Substance: DIAZEPAM
  5. INGREZZA [Suspect]
     Active Substance: VALBENAZINE
     Route: 048
     Dates: start: 202009, end: 20201104

REACTIONS (3)
  - Tardive dyskinesia [Unknown]
  - Restlessness [Unknown]
  - Feeling abnormal [Unknown]

NARRATIVE: CASE EVENT DATE: 202010
